FAERS Safety Report 5743616-2 (Version None)
Quarter: 2008Q2

REPORT INFORMATION
  Report Type: 
  Country: None (occurrence: None)
  Receive Date: 20080520
  Receipt Date: 20080512
  Transmission Date: 20081010
  Serious: Yes (Other)
  Sender: FDA-Public Use
  Company Number: US-BAYER-200822604NA

PATIENT
  Sex: Male

DRUGS (8)
  1. AVELOX [Suspect]
     Indication: BRONCHITIS
     Dosage: TOTAL DAILY DOSE: 400 MG  UNIT DOSE: 400 MG
     Route: 048
     Dates: start: 20080430, end: 20080501
  2. AVELOX [Suspect]
     Dosage: TOTAL DAILY DOSE: 400 MG  UNIT DOSE: 400 MG
     Route: 048
     Dates: start: 20080428, end: 20080429
  3. PENTASA [Concomitant]
  4. MOBIC [Concomitant]
  5. PREVACID [Concomitant]
  6. CHOLESTYRAMINE [Concomitant]
  7. BENICAR [Concomitant]
  8. NIFEREX FORTE [Concomitant]

REACTIONS (6)
  - DYSSTASIA [None]
  - INFLAMMATION [None]
  - PAIN [None]
  - PAIN IN EXTREMITY [None]
  - RHEUMATOID ARTHRITIS [None]
  - SWELLING [None]
